FAERS Safety Report 24550671 (Version 1)
Quarter: 2024Q4

REPORT INFORMATION
  Report Type: Spontaneous
  Country: BE (occurrence: BE)
  Receive Date: 20241025
  Receipt Date: 20241025
  Transmission Date: 20250115
  Serious: No
  Sender: JAZZ
  Company Number: BE-JAZZ PHARMACEUTICALS-2024-BE-008615

PATIENT
  Age: 9 Year
  Sex: Female

DRUGS (2)
  1. DEFITELIO [Suspect]
     Active Substance: DEFIBROTIDE SODIUM
     Indication: Leukaemia
     Dosage: UNK
  2. CIDOFOVIR [Concomitant]
     Active Substance: CIDOFOVIR
     Indication: Cytomegalovirus infection
     Dosage: UNK

REACTIONS (1)
  - Off label use [Unknown]
